FAERS Safety Report 13694378 (Version 1)
Quarter: 2017Q2

REPORT INFORMATION
  Report Type: Other
  Country: CA (occurrence: CA)
  Receive Date: 20170627
  Receipt Date: 20170627
  Transmission Date: 20170830
  Serious: Yes (Hospitalization)
  Sender: FDA-Public Use
  Company Number: CA-APOTEX-2017AP013288

PATIENT
  Age: 63 Year
  Sex: Male
  Weight: 58 kg

DRUGS (2)
  1. APO-OLANZAPINE ODT [Suspect]
     Active Substance: OLANZAPINE
     Dosage: 15 MG, QD
     Route: 048
  2. APO-OLANZAPINE ODT [Suspect]
     Active Substance: OLANZAPINE
     Indication: SCHIZOPHRENIA
     Dosage: 2.5 MG, QD
     Route: 048

REACTIONS (3)
  - Treatment noncompliance [Recovered/Resolved]
  - Condition aggravated [Recovered/Resolved]
  - Psychiatric symptom [Recovered/Resolved]
